FAERS Safety Report 8955290 (Version 1)
Quarter: 2012Q4

REPORT INFORMATION
  Report Type: Report from Study
  Country: GB (occurrence: GB)
  Receive Date: 20121207
  Receipt Date: 20121207
  Transmission Date: 20130627
  Serious: Yes (Death)
  Sender: FDA-Public Use
  Company Number: GB-ELI_LILLY_AND_COMPANY-GB201212001169

PATIENT
  Age: 60 Year
  Sex: Female
  Weight: 50.5 kg

DRUGS (11)
  1. PEMETREXED [Suspect]
     Indication: NON-SMALL CELL LUNG CANCER METASTATIC
     Dosage: 500 mg/m2, other
     Route: 042
     Dates: start: 20120910, end: 20121118
  2. CISPLATIN [Suspect]
     Indication: NON-SMALL CELL LUNG CANCER METASTATIC
     Dosage: 75 mg/m2, other
     Route: 042
     Dates: start: 20120910, end: 20121118
  3. MOVICOL [Concomitant]
     Indication: CONSTIPATION
     Dosage: 1 DF, bid
     Route: 048
     Dates: end: 20121117
  4. SPIRIVA [Concomitant]
     Indication: CHRONIC OBSTRUCTIVE PULMONARY DISEASE
     Dosage: 18 mg, qd
     Route: 055
     Dates: end: 20121117
  5. AMLODIPINE [Concomitant]
     Indication: HYPERTENSION
     Dosage: 10 mg, qd
     Route: 048
     Dates: end: 20121117
  6. RAMIPRIL [Concomitant]
     Indication: HYPERTENSION
     Dosage: 5 mg, qd
     Route: 048
     Dates: end: 20121117
  7. SIMVASTATIN [Concomitant]
     Indication: BLOOD CHOLESTEROL
     Dosage: 10 mg, qd
     Route: 048
     Dates: end: 20121117
  8. MOVELAT                            /00479601/ [Concomitant]
     Indication: PAIN
     Dosage: UNK, tid
     Route: 061
     Dates: end: 20121117
  9. ASPIRIN [Concomitant]
     Indication: HYPERTENSION
     Dosage: 75 mg, qd
     Route: 048
     Dates: end: 20121117
  10. SANDO K [Concomitant]
     Indication: HYPOKALAEMIC SYNDROME
     Dosage: UNK, tid
     Route: 048
     Dates: end: 20121117
  11. PARACETAMOL [Concomitant]
     Indication: PAIN
     Dosage: 1 g, prn
     Route: 048
     Dates: end: 20121117

REACTIONS (1)
  - Pneumonia [Fatal]
